FAERS Safety Report 10172874 (Version 2)
Quarter: 2014Q2

REPORT INFORMATION
  Report Type: Spontaneous
  Country: IT (occurrence: IT)
  Receive Date: 20140515
  Receipt Date: 20140602
  Transmission Date: 20141212
  Serious: Yes (Hospitalization)
  Sender: FDA-Public Use
  Company Number: IT-JNJFOC-20140502629

PATIENT
  Age: 49 Year
  Sex: Female
  Weight: 50 kg

DRUGS (3)
  1. HALDOL [Suspect]
     Indication: DRUG ABUSE
     Route: 048
     Dates: start: 20140505, end: 20140505
  2. ANAFRANIL [Suspect]
     Indication: DRUG ABUSE
     Route: 048
     Dates: start: 20140505, end: 20140505
  3. EN [Suspect]
     Indication: DRUG ABUSE
     Route: 048
     Dates: start: 20140505, end: 20140505

REACTIONS (3)
  - Sopor [Recovering/Resolving]
  - Substance abuse [Recovering/Resolving]
  - Speech disorder [Recovering/Resolving]
